FAERS Safety Report 18181275 (Version 22)
Quarter: 2024Q3

REPORT INFORMATION
  Report Type: Report from Study
  Country: CA (occurrence: CA)
  Receive Date: 20200821
  Receipt Date: 20240918
  Transmission Date: 20241017
  Serious: Yes (Hospitalization, Other)
  Sender: NOVARTIS
  Company Number: NVSC2017CA011902

PATIENT
  Age: 62 Year
  Sex: Female

DRUGS (16)
  1. SANDOSTATIN LAR DEPOT [Suspect]
     Active Substance: OCTREOTIDE ACETATE
     Indication: Carcinoid syndrome
     Dosage: 30 MG, QMO (EVERY 3-4 WEEKS)
     Route: 030
     Dates: start: 20070101
  2. SANDOSTATIN LAR DEPOT [Suspect]
     Active Substance: OCTREOTIDE ACETATE
     Dosage: 30 MG, Q 3-4 WEEKS
     Route: 030
     Dates: start: 20190424
  3. SANDOSTATIN LAR DEPOT [Suspect]
     Active Substance: OCTREOTIDE ACETATE
     Dosage: 30 MG, Q 3-4 WEEKS
     Route: 030
     Dates: start: 20190909
  4. SANDOSTATIN LAR DEPOT [Suspect]
     Active Substance: OCTREOTIDE ACETATE
     Dosage: UNK
     Route: 065
     Dates: start: 20230207
  5. SANDOSTATIN LAR DEPOT [Suspect]
     Active Substance: OCTREOTIDE ACETATE
     Dosage: 30 MG, EVERY 3-4 WEEKS
     Route: 030
  6. SANDOSTATIN LAR DEPOT [Suspect]
     Active Substance: OCTREOTIDE ACETATE
     Dosage: 30 MG, QMO
     Route: 030
  7. SANDOSTATIN [Suspect]
     Active Substance: OCTREOTIDE ACETATE
     Indication: Carcinoid syndrome
     Dosage: UNK
     Route: 058
  8. SANDOSTATIN [Suspect]
     Active Substance: OCTREOTIDE ACETATE
  9. SANDOSTATIN [Suspect]
     Active Substance: OCTREOTIDE ACETATE
  10. OCTREOTIDE [Suspect]
     Active Substance: OCTREOTIDE\OCTREOTIDE ACETATE
     Indication: Carcinoid syndrome
     Dosage: 50 UG, TID
     Route: 058
     Dates: start: 20190901
  11. OCTREOTIDE [Suspect]
     Active Substance: OCTREOTIDE\OCTREOTIDE ACETATE
     Dosage: 50 UG,TID, PRN (2-3 TIMES A MONTH AND 1 INJECTION ONLY A DAY
     Route: 058
  12. RANITIDINE [Suspect]
     Active Substance: RANITIDINE
     Indication: Duodenitis
     Dosage: 150 MG, UNK
     Route: 048
     Dates: end: 2019
  13. RANITIDINE [Suspect]
     Active Substance: RANITIDINE
     Indication: Pain
  14. TUMS [Concomitant]
     Active Substance: CALCIUM CARBONATE
     Indication: Product used for unknown indication
     Dosage: UNK
     Route: 048
  15. METFORMIN [Concomitant]
     Active Substance: METFORMIN HYDROCHLORIDE
     Indication: Product used for unknown indication
     Dosage: UNK
     Route: 065
  16. GRAVOL [Concomitant]
     Active Substance: DIMENHYDRINATE
     Indication: Product used for unknown indication
     Dosage: UNK
     Route: 065

REACTIONS (62)
  - Atrial fibrillation [Recovered/Resolved]
  - Heart rate irregular [Recovering/Resolving]
  - Palpitations [Unknown]
  - Bronchitis [Unknown]
  - Blood glucose increased [Recovering/Resolving]
  - Diarrhoea [Recovered/Resolved]
  - Carcinoid crisis [Recovered/Resolved]
  - Arrhythmia [Unknown]
  - Atrial fibrillation [Unknown]
  - Fatigue [Unknown]
  - Erythema [Recovered/Resolved]
  - Abdominal pain upper [Recovered/Resolved]
  - Rash erythematous [Recovered/Resolved]
  - Back pain [Not Recovered/Not Resolved]
  - Fall [Unknown]
  - Contusion [Unknown]
  - Pain in extremity [Unknown]
  - Depression [Unknown]
  - Body temperature decreased [Unknown]
  - Abdominal discomfort [Unknown]
  - Musculoskeletal discomfort [Unknown]
  - Flushing [Unknown]
  - Blood pressure increased [Recovering/Resolving]
  - Blood pressure decreased [Recovering/Resolving]
  - Blood pressure systolic increased [Unknown]
  - Vaginal haemorrhage [Unknown]
  - Uterine polyp [Unknown]
  - Influenza [Unknown]
  - Productive cough [Recovering/Resolving]
  - Pyrexia [Unknown]
  - Oropharyngeal pain [Unknown]
  - Nightmare [Recovered/Resolved]
  - Extrasystoles [Unknown]
  - Sputum discoloured [Unknown]
  - Tooth fracture [Unknown]
  - Breast mass [Unknown]
  - Hyperkeratosis [Unknown]
  - Heart rate decreased [Unknown]
  - Feeling abnormal [Unknown]
  - Atrioventricular block first degree [Unknown]
  - Electrocardiogram T wave amplitude decreased [Unknown]
  - Sinus bradycardia [Unknown]
  - Dyspepsia [Unknown]
  - Tachycardia [Recovering/Resolving]
  - Dyspnoea [Recovering/Resolving]
  - Abdominal pain [Unknown]
  - Headache [Unknown]
  - Bowel movement irregularity [Unknown]
  - Injection site pain [Recovered/Resolved]
  - Injection site erythema [Recovered/Resolved]
  - Injection site warmth [Recovered/Resolved]
  - Injection site pain [Recovered/Resolved]
  - Injection site erythema [Recovered/Resolved]
  - Injection site pain [Recovered/Resolved]
  - Injection site erythema [Recovered/Resolved]
  - Injection site haemorrhage [Recovered/Resolved]
  - Injection site erythema [Recovered/Resolved]
  - Injection site pain [Recovered/Resolved]
  - Needle issue [Unknown]
  - Inappropriate schedule of product administration [Unknown]
  - Lacrimation increased [Unknown]
  - Diarrhoea [Unknown]

NARRATIVE: CASE EVENT DATE: 20070101
